FAERS Safety Report 8374305-6 (Version None)
Quarter: 2012Q2

REPORT INFORMATION
  Report Type: 
  Country: None (occurrence: None)
  Receive Date: 20120521
  Receipt Date: 20120515
  Transmission Date: 20120825
  Serious: Yes (Hospitalization)
  Sender: FDA-Public Use
  Company Number: PHHY2012AR024298

PATIENT
  Sex: Female

DRUGS (2)
  1. ONBREZ [Suspect]
     Dosage: 150 UG, UNK
  2. ONBREZ [Suspect]
     Dosage: 150 UG, UNK
     Dates: start: 20110830, end: 20120401

REACTIONS (3)
  - FEELING ABNORMAL [None]
  - RESPIRATORY FAILURE [None]
  - BACTERIAL INFECTION [None]
